FAERS Safety Report 7186374-X (Version None)
Quarter: 2010Q4

REPORT INFORMATION
  Report Type: 
  Country: None (occurrence: None)
  Receive Date: 20101222
  Receipt Date: 20100621
  Transmission Date: 20110411
  Serious: No
  Sender: FDA-Public Use
  Company Number: US-AMGEN-KDL419624

PATIENT

DRUGS (8)
  1. ENBREL [Suspect]
     Indication: PRODUCT USED FOR UNKNOWN INDICATION
     Dosage: 50 MG, QWK
     Route: 058
  2. METHOTREXATE [Concomitant]
     Dosage: 2.5 MG, UNK
  3. LEVOTHYROXINE SODIUM [Concomitant]
     Dosage: 88 A?G, UNK
  4. FOLIC ACID [Concomitant]
     Dosage: 1 MG, UNK
  5. TIZANIDINE HYDROCHLORIDE [Concomitant]
     Dosage: 2 MG, UNK
  6. EZETIMIBE/SIMVASTATIN [Concomitant]
     Dosage: 10 MG, UNK
  7. ASPIRIN [Concomitant]
     Dosage: 81 MG, UNK
  8. MULTI-VITAMINS [Concomitant]
     Dosage: UNK UNK, UNK

REACTIONS (1)
  - INJECTION SITE REACTION [None]
